FAERS Safety Report 6937774-1 (Version None)
Quarter: 2010Q3

REPORT INFORMATION
  Report Type: 
  Country: None (occurrence: None)
  Receive Date: 20100823
  Receipt Date: 20100823
  Transmission Date: 20110219
  Serious: Yes (Hospitalization)
  Sender: FDA-Public Use
  Company Number: None

PATIENT
  Age: 64 Year
  Sex: Male
  Weight: 106.051 kg

DRUGS (17)
  1. ZACTIMA [Suspect]
     Indication: GLIOBLASTOMA
     Dosage: 100 MG, QD, PO
     Route: 048
     Dates: start: 20091013, end: 20100711
  2. GLUCOSAMINE [Concomitant]
  3. XEPPRA [Concomitant]
  4. LISINOPRIL [Concomitant]
  5. OXYCODONE HCL [Concomitant]
  6. PRILOSEC [Concomitant]
  7. SIMVASTATIN [Concomitant]
  8. ACETAMINOPHEN [Concomitant]
  9. ZOFRAN [Concomitant]
  10. ZOLOFT [Concomitant]
  11. NEURONTIN [Concomitant]
  12. BACTRIM DS [Concomitant]
  13. DEXAMETHASONE [Concomitant]
  14. ASPIRIN [Concomitant]
  15. DOCUSATE SODIUM [Concomitant]
  16. DEPAKOTE ER [Concomitant]
  17. TEMOZOLOMIDE [Suspect]

REACTIONS (5)
  - COLONIC FISTULA [None]
  - ESCHERICHIA URINARY TRACT INFECTION [None]
  - FALL [None]
  - GASTROINTESTINAL FISTULA [None]
  - PNEUMATURIA [None]
